FAERS Safety Report 4294215-3 (Version None)
Quarter: 2004Q1

REPORT INFORMATION
  Report Type: 
  Country: None (occurrence: None)
  Receive Date: 20040211
  Receipt Date: 20040204
  Transmission Date: 20041129
  Serious: Yes (Death, Life-Threatening, Hospitalization, Congenital Anomaly, Other)
  Sender: FDA-Public Use
  Company Number: 137428USA

PATIENT
  Age: 0 Day
  Sex: Male

DRUGS (1)
  1. PURINETHOL [Suspect]
     Dosage: 1 TABLET BID ORAL
     Route: 048

REACTIONS (3)
  - PREMATURE BABY [None]
  - TRANSMISSION OF DRUG VIA SEMEN [None]
  - TRISOMY 13 [None]
